FAERS Safety Report 5974258-1 (Version None)
Quarter: 2008Q4

REPORT INFORMATION
  Report Type: 
  Country: None (occurrence: None)
  Receive Date: 20081201
  Receipt Date: 20080121
  Transmission Date: 20090506
  Serious: Yes (Hospitalization, Other)
  Sender: FDA-Public Use
  Company Number: GB-PFIZER INC-2008100573

PATIENT
  Age: 38 Year
  Sex: Female

DRUGS (2)
  1. CHAMPIX [Suspect]
     Indication: SMOKING CESSATION THERAPY
     Route: 048
  2. ANTIDEPRESSANTS [Concomitant]
     Indication: DEPRESSION
     Dates: start: 20050101

REACTIONS (6)
  - AGGRESSION [None]
  - DEPRESSION [None]
  - MALAISE [None]
  - MOOD ALTERED [None]
  - SUICIDE ATTEMPT [None]
  - VOMITING [None]
